FAERS Safety Report 4483395-2 (Version None)
Quarter: 2004Q4

REPORT INFORMATION
  Report Type: 
  Country: None (occurrence: None)
  Receive Date: 20041020
  Receipt Date: 20041007
  Transmission Date: 20050328
  Serious: Yes (Hospitalization)
  Sender: FDA-Public Use
  Company Number: 02100-JPN-04-0269

PATIENT
  Age: 60 Year
  Sex: Female

DRUGS (6)
  1. CILOSTAZOL [Suspect]
     Indication: THROMBOTIC STROKE
     Dosage: 200 MG, ORAL
     Route: 048
     Dates: start: 20040906, end: 20040920
  2. ASPIRIN [Concomitant]
  3. VOGLIBOSE [Concomitant]
  4. MAGNESIUM OXIDE [Concomitant]
  5. MECOBALAMIN [Concomitant]
  6. INSULIN [Concomitant]

REACTIONS (4)
  - BLOOD GLUCOSE INCREASED [None]
  - DECREASED APPETITE [None]
  - DIZZINESS [None]
  - NAUSEA [None]
